FAERS Safety Report 25256991 (Version 2)
Quarter: 2025Q2

REPORT INFORMATION
  Report Type: Report from Study
  Country: PH (occurrence: PH)
  Receive Date: 20250430
  Receipt Date: 20250506
  Transmission Date: 20250716
  Serious: Yes (Death)
  Sender: MERCK SHARP & DOHME LLC
  Company Number: PH-009507513-2254408

PATIENT
  Age: 67 Year
  Sex: Male

DRUGS (4)
  1. KEYTRUDA [Suspect]
     Active Substance: PEMBROLIZUMAB
     Indication: Non-small cell lung cancer
     Dosage: 200 MG IV EVERY 3 WEEKS, CYCLE 1
     Route: 042
     Dates: start: 20241224, end: 20241224
  2. KEYTRUDA [Suspect]
     Active Substance: PEMBROLIZUMAB
     Indication: Non-small cell lung cancer
     Dosage: 200 MG IV EVERY 3 WEEKS, CYCLE 2
     Route: 042
     Dates: start: 20250114, end: 20250114
  3. KEYTRUDA [Suspect]
     Active Substance: PEMBROLIZUMAB
     Indication: Non-small cell lung cancer
     Dosage: 200 MG IV EVERY 3 WEEKS, CYCLE 3
     Route: 042
     Dates: start: 20250211, end: 20250211
  4. KEYTRUDA [Suspect]
     Active Substance: PEMBROLIZUMAB
     Indication: Non-small cell lung cancer
     Dosage: 200 MG IV EVERY 3 WEEKS, CYCLE 4
     Route: 042
     Dates: start: 20250425, end: 20250225

REACTIONS (3)
  - Acute respiratory failure [Fatal]
  - Inappropriate schedule of product administration [Unknown]
  - Inappropriate schedule of product administration [Unknown]

NARRATIVE: CASE EVENT DATE: 20250211
